FAERS Safety Report 10513818 (Version 1)
Quarter: 2014Q4

REPORT INFORMATION
  Report Type: Spontaneous
  Country: US (occurrence: US)
  Receive Date: 20141013
  Receipt Date: 20141013
  Transmission Date: 20150528
  Serious: Yes (Hospitalization, Other)
  Sender: FDA-Public Use
  Company Number: US-GLAXOSMITHKLINE-US2014GSK005366

PATIENT
  Sex: Female

DRUGS (1)
  1. SUMATRIPTAN SUCCINATE. [Suspect]
     Active Substance: SUMATRIPTAN SUCCINATE
     Indication: MIGRAINE
     Dosage: 20 MG, PRN
     Route: 045
     Dates: start: 2004

REACTIONS (2)
  - Mastectomy [Not Recovered/Not Resolved]
  - Breast cancer stage III [Not Recovered/Not Resolved]

NARRATIVE: CASE EVENT DATE: 2011
